FAERS Safety Report 20323823 (Version 1)
Quarter: 2022Q1

REPORT INFORMATION
  Report Type: Report from Study
  Country: MX (occurrence: MX)
  Receive Date: 20220111
  Receipt Date: 20220111
  Transmission Date: 20220423
  Serious: Yes (Other)
  Sender: FDA-Public Use
  Company Number: MX-UCBSA-2019006029

PATIENT
  Age: 63 Year
  Sex: Male
  Weight: 60 kg

DRUGS (3)
  1. ROTIGOTINE [Suspect]
     Active Substance: ROTIGOTINE
     Indication: Parkinson^s disease
     Dosage: 2 MG, ONCE DAILY (QD)
     Route: 062
     Dates: start: 201901
  2. LEVODOPA [Concomitant]
     Active Substance: LEVODOPA
     Indication: Dopaminergic drug therapy
     Dosage: 1 DF, 4X/DAY (QID)
  3. BIPERIDEN [Concomitant]
     Active Substance: BIPERIDEN
     Indication: Parkinson^s disease
     Dosage: 1 DF, 2X/DAY (BID)

REACTIONS (2)
  - Medical device implantation [Unknown]
  - Drug ineffective [Unknown]

NARRATIVE: CASE EVENT DATE: 20190101
